FAERS Safety Report 19172393 (Version 4)
Quarter: 2022Q2

REPORT INFORMATION
  Report Type: Spontaneous
  Country: US (occurrence: US)
  Receive Date: 20210423
  Receipt Date: 20220616
  Transmission Date: 20220721
  Serious: No
  Sender: FDA-Public Use
  Company Number: US-SA-SAC20210422001584

PATIENT
  Age: 17 Year
  Sex: Female

DRUGS (3)
  1. DUPIXENT [Suspect]
     Active Substance: DUPILUMAB
     Indication: Psoriasis
     Dosage: 300 MG, QOW
     Route: 058
     Dates: start: 20081019
  2. DUPIXENT [Suspect]
     Active Substance: DUPILUMAB
     Dosage: 300 MG, QOW
     Route: 058
     Dates: start: 20190522
  3. DUPIXENT [Suspect]
     Active Substance: DUPILUMAB
     Dosage: UNK
     Dates: start: 20200722

REACTIONS (11)
  - Pruritus [Unknown]
  - Skin burning sensation [Unknown]
  - Condition aggravated [Unknown]
  - Psoriasis [Unknown]
  - Rash macular [Unknown]
  - Condition aggravated [Unknown]
  - Rash macular [Unknown]
  - Pruritus [Unknown]
  - Skin burning sensation [Unknown]
  - Condition aggravated [Unknown]
  - Product use in unapproved indication [Unknown]

NARRATIVE: CASE EVENT DATE: 20081019
